FAERS Safety Report 8915101 (Version 1)
Quarter: 2012Q4

REPORT INFORMATION
  Report Type: 
  Country: US (occurrence: US)
  Receive Date: 20121119
  Receipt Date: 20121119
  Transmission Date: 20130627
  Serious: Yes (Hospitalization, Other)
  Sender: FDA-Public Use
  Company Number: US-BAYER-2012-118535

PATIENT
  Age: 31 Year
  Sex: Female
  Weight: 97.51 kg

DRUGS (3)
  1. YAZ [Suspect]
  2. PRILOSEC [Concomitant]
     Dosage: UNK
     Dates: start: 20110803
  3. ANTACIDS [Concomitant]
     Dosage: UNK
     Dates: start: 20110801

REACTIONS (4)
  - Pulmonary embolism [Recovered/Resolved]
  - Deep vein thrombosis [Recovered/Resolved]
  - Cholelithiasis [None]
  - Thrombophlebitis superficial [None]
